FAERS Safety Report 23477999 (Version 1)
Quarter: 2024Q1

REPORT INFORMATION
  Report Type: Spontaneous
  Country: AU (occurrence: AU)
  Receive Date: 20240204
  Receipt Date: 20240204
  Transmission Date: 20240410
  Serious: Yes (Hospitalization, Other)
  Sender: FDA-Public Use
  Company Number: AU-BRISTOL-MYERS SQUIBB COMPANY-2024-014810

PATIENT
  Sex: Female

DRUGS (15)
  1. VIDAZA [Suspect]
     Active Substance: AZACITIDINE
     Indication: Mantle cell lymphoma
     Dates: start: 20230120
  2. PEGFILGRASTIM [Suspect]
     Active Substance: PEGFILGRASTIM
     Indication: Product used for unknown indication
     Dates: start: 2023
  3. PEGFILGRASTIM [Suspect]
     Active Substance: PEGFILGRASTIM
  4. RITUXIMAB [Suspect]
     Active Substance: RITUXIMAB
     Indication: Mantle cell lymphoma
     Dates: start: 20230202
  5. RITUXIMAB [Suspect]
     Active Substance: RITUXIMAB
     Dates: start: 20230220
  6. CYCLOPHOSPHAMIDE [Suspect]
     Active Substance: CYCLOPHOSPHAMIDE
     Indication: Mantle cell lymphoma
     Dates: start: 20230121
  7. CYCLOPHOSPHAMIDE [Suspect]
     Active Substance: CYCLOPHOSPHAMIDE
     Dates: start: 20230202
  8. CYCLOPHOSPHAMIDE [Suspect]
     Active Substance: CYCLOPHOSPHAMIDE
     Dates: start: 20230220
  9. VINCRISTINE [Suspect]
     Active Substance: VINCRISTINE
     Indication: Mantle cell lymphoma
     Dates: start: 20230121
  10. VINCRISTINE [Suspect]
     Active Substance: VINCRISTINE
     Dates: start: 20230202
  11. VINCRISTINE [Suspect]
     Active Substance: VINCRISTINE
     Dates: start: 20230220
  12. PREDNISONE [Suspect]
     Active Substance: PREDNISONE
     Indication: Product used for unknown indication
     Dates: start: 20230121
  13. PREDNISONE [Suspect]
     Active Substance: PREDNISONE
     Dates: start: 20230220
  14. CYTARABINE [Suspect]
     Active Substance: CYTARABINE
     Indication: Mantle cell lymphoma
     Dosage: 3G/M2 BD X 4 DOSES
     Dates: start: 20230119, end: 20230121
  15. VENETOCLAX [Suspect]
     Active Substance: VENETOCLAX
     Indication: Mantle cell lymphoma
     Dates: start: 20230124, end: 20230210

REACTIONS (6)
  - Neuropathy peripheral [Unknown]
  - Malignant neoplasm progression [Unknown]
  - Splenomegaly [Unknown]
  - Blood lactate dehydrogenase increased [Unknown]
  - Leukocytosis [Unknown]
  - Off label use [Unknown]

NARRATIVE: CASE EVENT DATE: 20230101
